FAERS Safety Report 23235401 (Version 3)
Quarter: 2024Q1

REPORT INFORMATION
  Report Type: Report from Study
  Country: IT (occurrence: IT)
  Receive Date: 20231128
  Receipt Date: 20240206
  Transmission Date: 20240409
  Serious: Yes (Other)
  Sender: FDA-Public Use
  Company Number: None

PATIENT

DRUGS (6)
  1. PEGASPARGASE [Suspect]
     Active Substance: PEGASPARGASE
     Indication: B-cell type acute leukaemia
     Dosage: 2190 IU, QD
     Route: 042
     Dates: start: 20231027, end: 20231027
  2. VINCRISTINE [Suspect]
     Active Substance: VINCRISTINE
     Indication: B-cell type acute leukaemia
     Dosage: 2 MG, DAILY, ON DAYS 23, 31/10, 07/11/2023
     Route: 042
     Dates: start: 20231023, end: 20231107
  3. DAUNORUBICIN [Suspect]
     Active Substance: DAUNORUBICIN
     Indication: B-cell type acute leukaemia
     Dosage: 29.3 MG, DAILY, ON 23/10, 31/10 AND 07/11
     Route: 042
     Dates: start: 20231023, end: 20231107
  4. PREDNISONE [Concomitant]
     Active Substance: PREDNISONE
     Indication: B-cell type acute leukaemia
     Dosage: 17.5 MG, TID
     Route: 048
     Dates: start: 20231023, end: 20231112
  5. PREDNISONE [Concomitant]
     Active Substance: PREDNISONE
     Dosage: 38.75 MG, QD
     Route: 048
     Dates: start: 20231113, end: 20231115
  6. ESOMEPRAZOLE [Concomitant]
     Active Substance: ESOMEPRAZOLE
     Indication: Prophylaxis against gastrointestinal ulcer
     Dosage: 10 MG, QD
     Route: 048
     Dates: start: 20231024

REACTIONS (7)
  - Leukopenia [Recovered/Resolved]
  - Neutropenia [Recovered/Resolved]
  - Stomatitis [Recovered/Resolved]
  - Alopecia [Not Recovered/Not Resolved]
  - Pain in extremity [Recovered/Resolved]
  - Diarrhoea [Recovered/Resolved]
  - Constipation [Recovering/Resolving]

NARRATIVE: CASE EVENT DATE: 20231031
